FAERS Safety Report 8905486 (Version 1)
Quarter: 2012Q4

REPORT INFORMATION
  Report Type: 
  Country: CN (occurrence: CN)
  Receive Date: 20121109
  Receipt Date: 20121109
  Transmission Date: 20130627
  Serious: Yes (Other)
  Sender: FDA-Public Use
  Company Number: CN-BAYER-2012-034374

PATIENT
  Age: 26 Year
  Sex: Female

DRUGS (2)
  1. CANESTEN VAGINAL CREAM [Suspect]
     Indication: VULVOVAGINITIS
     Dosage: 1 DF, ONCE
     Route: 067
     Dates: start: 20120409
  2. PIFUKANG CLEANING SOLUTION [Concomitant]
     Indication: VULVOVAGINITIS
     Dosage: UNK
     Dates: start: 201204

REACTIONS (2)
  - Exposure during pregnancy [None]
  - Caesarean section [None]
